FAERS Safety Report 13456075 (Version 1)
Quarter: 2017Q2

REPORT INFORMATION
  Report Type: Spontaneous
  Country: US (occurrence: US)
  Receive Date: 20170419
  Receipt Date: 20170419
  Transmission Date: 20170830
  Serious: No
  Sender: FDA-Public Use
  Company Number: US-B.I. PHARMACEUTICALS,INC./RIDGEFIELD-2017-BI-021921

PATIENT

DRUGS (29)
  1. PROGRAF [Concomitant]
     Active Substance: TACROLIMUS\TACROLIMUS ANHYDROUS
     Indication: IMMUNOSUPPRESSANT DRUG THERAPY
     Dosage: TAKE 1 PILLS AT 9AM
     Route: 048
  2. MULTIVITAMIN [Concomitant]
     Active Substance: VITAMINS
     Indication: SUPPLEMENTATION THERAPY
     Dosage: TAKE 1 PILL AT 9AM
     Route: 048
  3. ZITHROMAX [Concomitant]
     Active Substance: AZITHROMYCIN DIHYDRATE
     Indication: LIVER TRANSPLANT REJECTION
     Route: 048
  4. ADVAIR DISKUS [Concomitant]
     Active Substance: FLUTICASONE PROPIONATE\SALMETEROL XINAFOATE
     Indication: PRODUCT USED FOR UNKNOWN INDICATION
     Dosage: 250/50MCG
     Route: 055
  5. RAPAMUNE [Concomitant]
     Active Substance: SIROLIMUS
     Dosage: TAKE 1 PILL AT 9AM, 1MG EVERY TUES THURS SAT SUN
     Route: 048
  6. IMDUR [Concomitant]
     Active Substance: ISOSORBIDE MONONITRATE
     Indication: CARDIAC DISORDER
     Dosage: TAKE 1 PILL AT 9AM
     Route: 048
  7. LASIX [Concomitant]
     Active Substance: FUROSEMIDE
     Indication: SWELLING
     Dosage: TAKE 1 PILL AT 9AM, MONITOR WEIGHT DAILY
     Route: 048
  8. RAPAMUNE [Concomitant]
     Active Substance: SIROLIMUS
     Indication: IMMUNOSUPPRESSANT DRUG THERAPY
     Dosage: TAKE 2 PILLS AT 9AM, 2MG EVERY MON WED FRI
     Route: 048
  9. FOLATE [Concomitant]
     Active Substance: FOLATE SODIUM
     Indication: SUPPLEMENTATION THERAPY
     Dosage: TAKE 1 PILL AT 9AM
     Route: 048
  10. ASPIRIN. [Concomitant]
     Active Substance: ASPIRIN
     Indication: ANTICOAGULANT THERAPY
     Dosage: TAKE 1 PILL AT 9AM
     Route: 048
  11. CALTRATE [Concomitant]
     Active Substance: CALCIUM CARBONATE
     Indication: SUPPLEMENTATION THERAPY
     Dosage: TAKE 1 PILL AT 9AM AND 9PM
     Route: 048
  12. GLUCOSAMINE/CHONDROITIN [Concomitant]
     Indication: SUPPLEMENTATION THERAPY
     Dosage: TAKE 1 PILL AT 9AM AND 9PM; I GM
     Route: 048
  13. LANTUS [Concomitant]
     Active Substance: INSULIN GLARGINE
     Indication: PRODUCT USED FOR UNKNOWN INDICATION
     Dosage: TAKE 30 UNITS AT 9PM (+SLIDING SCALE)
     Route: 058
  14. SEPTRA [Concomitant]
     Active Substance: SULFAMETHOXAZOLE\TRIMETHOPRIM
     Indication: ANTIBIOTIC PROPHYLAXIS
     Dosage: 400/80 MG; 1 TAB EVERY MON WED FRI
     Route: 048
  15. MAG-OX [Concomitant]
     Active Substance: MAGNESIUM OXIDE
     Indication: SUPPLEMENTATION THERAPY
     Dosage: TAKE 1 PILL AT 9AM AND 9 PM
     Route: 048
  16. BRILINTA [Concomitant]
     Active Substance: TICAGRELOR
     Indication: ANTICOAGULANT THERAPY
     Dosage: TAKE 1 PILL AT 9AM AND 9PM
     Route: 048
  17. FLONASE [Concomitant]
     Active Substance: FLUTICASONE PROPIONATE
     Indication: MULTIPLE ALLERGIES
     Dosage: 50MCG/SPRAY;
     Route: 045
  18. PROAIR HFA [Concomitant]
     Active Substance: ALBUTEROL SULFATE
     Indication: RESPIRATION ABNORMAL
     Route: 055
  19. LIPITOR [Concomitant]
     Active Substance: ATORVASTATIN CALCIUM
     Indication: BLOOD CHOLESTEROL
     Dosage: TAKE 1 PILL AT 9PM
     Route: 048
  20. PROTONIX [Concomitant]
     Active Substance: PANTOPRAZOLE SODIUM
     Indication: GASTROINTESTINAL DISORDER
     Dosage: TAKE 1 PILL AT 9AM
     Route: 048
  21. LOVAZA [Concomitant]
     Active Substance: OMEGA-3-ACID ETHYL ESTERS
     Indication: BLOOD TRIGLYCERIDES
     Dosage: TAKE 2 PILLS AT 9AM AND 9PM; I GM
     Route: 048
  22. NOVOLOG [Concomitant]
     Active Substance: INSULIN ASPART
     Indication: BLOOD GLUCOSE ABNORMAL
     Dosage: 10 UNITS WITH MEALS
     Route: 058
  23. ZOLOFT [Concomitant]
     Active Substance: SERTRALINE HYDROCHLORIDE
     Indication: DEPRESSION
     Dosage: TAKE 1 PILL AT 9AM
     Route: 048
  24. LISINOPRIL. [Concomitant]
     Active Substance: LISINOPRIL
     Indication: BLOOD PRESSURE MEASUREMENT
     Dosage: TAKE 1/2 PILL AT 9AM
     Route: 048
  25. COREG [Concomitant]
     Active Substance: CARVEDILOL
     Indication: CARDIAC DISORDER
     Dosage: TAKE 1 PILL AT 9AM AND 9PM
     Route: 048
  26. SPIRIVA [Suspect]
     Active Substance: TIOTROPIUM BROMIDE MONOHYDRATE
     Indication: RESPIRATION ABNORMAL
     Dosage: RINSE MOUTH AFTER USE
     Route: 055
  27. NYSTATIN SUSPENSION [Concomitant]
     Active Substance: NYSTATIN
     Indication: ANTIFUNGAL TREATMENT
     Dosage: 100,000 UNITS/ ML 1; SWISH AND SWALLOW
     Route: 048
  28. REGLAN [Concomitant]
     Active Substance: METOCLOPRAMIDE HYDROCHLORIDE
     Indication: GASTROINTESTINAL DISORDER
     Dosage: TAKE 1 PILL AT 9AM AND 5 PM
     Route: 048
  29. PREDNISONE. [Concomitant]
     Active Substance: PREDNISONE
     Indication: IMMUNOSUPPRESSANT DRUG THERAPY
     Dosage: TAKE 1 1/2 PILLS AT 9AM
     Route: 048

REACTIONS (1)
  - Product use in unapproved indication [Unknown]
